FAERS Safety Report 13998493 (Version 1)
Quarter: 2017Q3

REPORT INFORMATION
  Report Type: Spontaneous
  Country: DE (occurrence: DE)
  Receive Date: 20170922
  Receipt Date: 20170922
  Transmission Date: 20171128
  Serious: Yes (Other)
  Sender: FDA-Public Use
  Company Number: DE-JNJFOC-20170920744

PATIENT

DRUGS (1)
  1. TRAMAL [Suspect]
     Active Substance: TRAMADOL
     Indication: ARTHRALGIA
     Route: 065

REACTIONS (7)
  - Fatigue [Recovered/Resolved]
  - Depressed mood [Recovered/Resolved]
  - Drug dependence [Recovered/Resolved]
  - Headache [Recovered/Resolved]
  - Impatience [Recovered/Resolved]
  - Irritability [Recovered/Resolved]
  - Insomnia [Recovered/Resolved]
